FAERS Safety Report 8936281 (Version 2)
Quarter: 2013Q1

REPORT INFORMATION
  Report Type: Spontaneous
  Country: DE (occurrence: DE)
  Receive Date: 20121130
  Receipt Date: 20130124
  Transmission Date: 20140127
  Serious: Yes (Death, Other)
  Sender: FDA-Public Use
  Company Number: DE-PAR PHARMACEUTICAL, INC-2012SCPR004734

PATIENT
  Sex: 0

DRUGS (12)
  1. DOXEPIN [Suspect]
     Indication: PRODUCT USED FOR UNKNOWN INDICATION
     Dosage: 25 MG, DAILY
     Route: 065
  2. DOXEPIN [Interacting]
     Dosage: 100 MG, DAILY
     Route: 065
  3. DOXEPIN [Interacting]
     Dosage: 125 MG, DAILY
     Route: 065
  4. OLANZAPINE [Suspect]
     Indication: PRODUCT USED FOR UNKNOWN INDICATION
     Dosage: UNK, UNKNOWN
     Route: 065
  5. DIAZEPAM [Suspect]
     Indication: PRODUCT USED FOR UNKNOWN INDICATION
     Dosage: UNK, UNKNOWN
     Route: 065
  6. IBUPROFEN [Suspect]
     Indication: PRODUCT USED FOR UNKNOWN INDICATION
     Dosage: UNK, UNKNOWN
     Route: 065
  7. AMLODIPINE [Interacting]
     Indication: PRODUCT USED FOR UNKNOWN INDICATION
     Dosage: 2.5 MG ON DAY 1
     Route: 065
  8. AMLODIPINE [Interacting]
     Dosage: 7.5 MG ON DAY 2
     Route: 065
  9. AMLODIPINE [Interacting]
     Dosage: 10 MG ON DAY 3
     Route: 065
  10. PROTHIPENDYL [Interacting]
     Indication: PRODUCT USED FOR UNKNOWN INDICATION
     Dosage: UNK, UNKNOWN
     Route: 065
  11. TILIDINE [Suspect]
     Indication: PRODUCT USED FOR UNKNOWN INDICATION
     Dosage: UNK, UNKNOWN
     Route: 065
  12. METOPROLOL [Suspect]
     Indication: PRODUCT USED FOR UNKNOWN INDICATION
     Dosage: UNK, UNKNOWN
     Route: 065

REACTIONS (9)
  - Toxicity to various agents [Fatal]
  - Drug interaction [Fatal]
  - Gait disturbance [Unknown]
  - Salivary hypersecretion [Unknown]
  - Pain [Unknown]
  - Apathy [Unknown]
  - Death [Fatal]
  - Somnolence [Unknown]
  - Insomnia [Unknown]
